FAERS Safety Report 8021085 (Version 3)
Quarter: 2013Q2

REPORT INFORMATION
  Report Type: Spontaneous
  Country: US (occurrence: US)
  Receive Date: 20110705
  Receipt Date: 20130605
  Transmission Date: 20140414
  Serious: Yes (Other)
  Sender: FDA-Public Use
  Company Number: US-ROCHE-769869

PATIENT
  Age: 39 Year
  Sex: Female
  Weight: 52.2 kg

DRUGS (9)
  1. ACCUTANE [Suspect]
     Indication: ACNE CYSTIC
     Route: 065
  2. ACCUTANE [Suspect]
     Route: 065
  3. ACCUTANE [Suspect]
     Route: 065
     Dates: start: 199609, end: 199808
  4. ACCUTANE [Suspect]
     Route: 065
     Dates: start: 2006, end: 2007
  5. ACCUTANE [Suspect]
     Route: 065
     Dates: start: 2008, end: 2009
  6. CLARAVIS [Suspect]
     Indication: PRODUCT USED FOR UNKNOWN INDICATION
     Route: 065
     Dates: start: 200611, end: 200701
  7. PAXIL [Concomitant]
     Indication: DEPRESSION
  8. LIPITOR [Concomitant]
  9. ZYRTEC [Concomitant]

REACTIONS (9)
  - Colitis ulcerative [Unknown]
  - Anxiety [Unknown]
  - Inflammatory bowel disease [Unknown]
  - Depression [Unknown]
  - Colitis microscopic [Unknown]
  - Lip dry [Unknown]
  - Blood cholesterol increased [Unknown]
  - Blood triglycerides increased [Unknown]
  - Irritable bowel syndrome [Unknown]
